FAERS Safety Report 4869328-5 (Version None)
Quarter: 2005Q4

REPORT INFORMATION
  Report Type: 
  Country: None (occurrence: None)
  Receive Date: 20051228
  Receipt Date: 20051228
  Transmission Date: 20060501
  Serious: Yes (Other)
  Sender: FDA-Public Use
  Company Number: None

PATIENT
  Sex: Female
  Weight: 13.6079 kg

DRUGS (1)
  1. ZYRTEC [Suspect]
     Indication: HYPERSENSITIVITY
     Dosage: 10 MG 1 X DAY PO
     Route: 048
     Dates: start: 20020624, end: 20051221

REACTIONS (8)
  - AGGRESSION [None]
  - DEPRESSED MOOD [None]
  - HAEMORRHAGE [None]
  - INSOMNIA [None]
  - MOOD SWINGS [None]
  - SELF INJURIOUS BEHAVIOUR [None]
  - SLEEP TERROR [None]
  - SPEECH DISORDER DEVELOPMENTAL [None]
